FAERS Safety Report 7183089-9 (Version None)
Quarter: 2010Q4

REPORT INFORMATION
  Report Type: 
  Country: None (occurrence: None)
  Receive Date: 20101222
  Receipt Date: 20101021
  Transmission Date: 20110411
  Serious: No
  Sender: FDA-Public Use
  Company Number: A0888945A

PATIENT
  Age: 67 Year
  Sex: Female

DRUGS (1)
  1. RYTHMOL [Suspect]
     Indication: ATRIAL FIBRILLATION
     Dosage: 225MG THREE TIMES PER DAY
     Route: 048
     Dates: start: 19980101, end: 20100601

REACTIONS (1)
  - DRUG INEFFECTIVE [None]
